FAERS Safety Report 4408228-1 (Version None)
Quarter: 2004Q3

REPORT INFORMATION
  Report Type: 
  Country: None (occurrence: None)
  Receive Date: 20040726
  Receipt Date: 20040726
  Transmission Date: 20050211
  Serious: Yes (Life-Threatening)
  Sender: FDA-Public Use
  Company Number: None

PATIENT
  Age: 22 Year
  Sex: Female
  Weight: 72.5755 kg

DRUGS (3)
  1. AMITRIPTYLINE HCL [Suspect]
     Indication: FIBROMYALGIA
     Dosage: 75MG   ONCE DAILY   ORAL
     Route: 048
  2. AMITRIPTYLINE HCL [Suspect]
     Indication: INSOMNIA
     Dosage: 75MG   ONCE DAILY   ORAL
     Route: 048
  3. AMITRIPTYLINE HCL [Suspect]
     Indication: PAIN
     Dosage: 75MG   ONCE DAILY   ORAL
     Route: 048

REACTIONS (1)
  - HEART RATE INCREASED [None]
